FAERS Safety Report 5077883-8 (Version None)
Quarter: 2006Q3

REPORT INFORMATION
  Report Type: 
  Country: None (occurrence: None)
  Receive Date: 20060720
  Receipt Date: 20060123
  Transmission Date: 20061208
  Serious: Yes (Life-Threatening, Hospitalization)
  Sender: FDA-Public Use
  Company Number: 2006MP000086

PATIENT
  Age: 78 Year
  Sex: Male
  Weight: 75 kg

DRUGS (1)
  1. AGGRASTAT [Suspect]
     Dosage: 0.1 UG/KG/MIN;IV
     Route: 042
     Dates: start: 20051108, end: 20051109

REACTIONS (1)
  - THROMBOCYTOPENIA [None]
